FAERS Safety Report 6762556-3 (Version None)
Quarter: 2010Q2

REPORT INFORMATION
  Report Type: 
  Country: None (occurrence: None)
  Receive Date: 20100609
  Receipt Date: 20100531
  Transmission Date: 20101027
  Serious: Yes (Hospitalization, Other)
  Sender: FDA-Public Use
  Company Number: FR-PFIZER INC-2010023765

PATIENT
  Age: 53 Year
  Sex: Male
  Weight: 82 kg

DRUGS (2)
  1. CELEBREX [Suspect]
     Indication: BACK PAIN
     Dosage: 200, 1 DF, 1X/DAY
     Dates: end: 20091204
  2. BI-PROFENID [Concomitant]
     Indication: INTERVERTEBRAL DISC SPACE NARROWING
     Dosage: UNK

REACTIONS (4)
  - ANAPHYLACTIC SHOCK [None]
  - ANGIOEDEMA [None]
  - CARDIAC ARREST [None]
  - RESPIRATORY DISTRESS [None]
